FAERS Safety Report 13985614 (Version 1)
Quarter: 2017Q3

REPORT INFORMATION
  Report Type: Spontaneous
  Country: FR (occurrence: FR)
  Receive Date: 20170919
  Receipt Date: 20170919
  Transmission Date: 20171128
  Serious: Yes (Hospitalization)
  Sender: FDA-Public Use
  Company Number: FR-ACCORD-058697

PATIENT
  Age: 51 Year
  Sex: Female

DRUGS (12)
  1. FLUOROURACIL ACCORD [Suspect]
     Active Substance: FLUOROURACIL
     Indication: ADENOCARCINOMA GASTRIC
     Dosage: STRENGTH: 50 MG/ML.
     Route: 042
     Dates: start: 20170814
  2. OXALIPLATIN HOSPIRA [Suspect]
     Active Substance: OXALIPLATIN
     Indication: ADENOCARCINOMA GASTRIC
     Dosage: STRENGTH: 5 MG/ML FOR INFUSION
     Route: 042
     Dates: start: 20170814, end: 20170814
  3. TAKADOL [Concomitant]
     Active Substance: TRAMADOL
     Dosage: STRENGTH: 100 MG, SPLITTABLE EFFERVESCENT TABLET
  4. SPASFON LYOC [Concomitant]
     Active Substance: PHLOROGLUCINOL
     Dosage: STRENGTH: 160 MG
  5. DIFFU K [Concomitant]
     Active Substance: POTASSIUM CHLORIDE
  6. FUROSEMIDE. [Concomitant]
     Active Substance: FUROSEMIDE
  7. SPIRONOLACTONE. [Concomitant]
     Active Substance: SPIRONOLACTONE
  8. VOGALENE [Concomitant]
     Active Substance: METOPIMAZINE
     Dosage: STRENGTH: 15 MG
  9. INNOHEP [Concomitant]
     Active Substance: TINZAPARIN SODIUM
  10. DEBRIDAT [Concomitant]
     Active Substance: TRIMEBUTINE MALEATE
  11. FOLINIC ACID [Suspect]
     Active Substance: LEUCOVORIN
     Indication: ADENOCARCINOMA GASTRIC
     Dates: start: 20170814
  12. LANSOPRAZOLE. [Concomitant]
     Active Substance: LANSOPRAZOLE

REACTIONS (1)
  - Seizure [Recovered/Resolved]

NARRATIVE: CASE EVENT DATE: 20170829
